FAERS Safety Report 21380403 (Version 1)
Quarter: 2022Q3

REPORT INFORMATION
  Report Type: Spontaneous
  Country: US (occurrence: None)
  Receive Date: 20220923
  Receipt Date: 20220923
  Transmission Date: 20221027
  Serious: Yes (Life-Threatening)
  Sender: FDA-Public Use
  Company Number: None

PATIENT
  Age: 46 Year
  Sex: Male
  Weight: 67 kg

DRUGS (1)
  1. HYDRALAZINE [Suspect]
     Active Substance: HYDRALAZINE HYDROCHLORIDE
     Indication: Hypertension
     Dates: start: 20211206

REACTIONS (10)
  - Throat tightness [None]
  - Chest discomfort [None]
  - Flushing [None]
  - Chills [None]
  - Dizziness [None]
  - Vision blurred [None]
  - Dyspnoea [None]
  - Flushing [None]
  - Hypertension [None]
  - Anaphylactic reaction [None]

NARRATIVE: CASE EVENT DATE: 20211206
